FAERS Safety Report 12984564 (Version 2)
Quarter: 2017Q1

REPORT INFORMATION
  Report Type: Spontaneous
  Country: HR (occurrence: HR)
  Receive Date: 20161129
  Receipt Date: 20170116
  Transmission Date: 20170428
  Serious: Yes (Death, Other)
  Sender: FDA-Public Use
  Company Number: HR-009507513-1611HRV011820

PATIENT
  Age: 40 Year
  Sex: Female

DRUGS (1)
  1. ZERBAXA [Suspect]
     Active Substance: CEFTOLOZANE SULFATE\TAZOBACTAM SODIUM
     Indication: ANTIBIOTIC THERAPY
     Dosage: UNK

REACTIONS (3)
  - Ischaemic stroke [Fatal]
  - Sepsis [Fatal]
  - Septic shock [Unknown]
